FAERS Safety Report 6120061-1 (Version None)
Quarter: 2009Q1

REPORT INFORMATION
  Report Type: 
  Country: None (occurrence: None)
  Receive Date: 20090316
  Receipt Date: 20090306
  Transmission Date: 20090719
  Serious: Yes (Hospitalization)
  Sender: FDA-Public Use
  Company Number: FR-AMGEN-US337858

PATIENT
  Age: 72 Year
  Sex: Female

DRUGS (8)
  1. ENBREL [Suspect]
     Indication: RHEUMATOID ARTHRITIS
     Dosage: 50 MG TOTAL WEEKLY
     Route: 058
     Dates: start: 20050101, end: 20070901
  2. NEBIVOLOL HCL [Suspect]
     Route: 048
     Dates: start: 20070401, end: 20070901
  3. SIMVASTATIN [Concomitant]
     Dosage: UNKNOWN
  4. PROFENID [Concomitant]
     Dosage: UNKNOWN
  5. CORTANCYL [Concomitant]
     Dosage: UNKNOWN
     Route: 048
  6. OROCAL [Concomitant]
     Dosage: UNKNOWN
     Route: 048
  7. VITAMIN D3 [Concomitant]
     Dosage: UNKNOWN
     Route: 048
  8. HYZAAR [Concomitant]
     Dosage: UNKNOWN
     Route: 048

REACTIONS (5)
  - AGRANULOCYTOSIS [None]
  - AUTOANTIBODY POSITIVE [None]
  - BONE MARROW TOXICITY [None]
  - MYELOID MATURATION ARREST [None]
  - NEUTROPENIA [None]
